FAERS Safety Report 5565331-0 (Version None)
Quarter: 2007Q4

REPORT INFORMATION
  Report Type: 
  Country: None (occurrence: None)
  Receive Date: 20071218
  Receipt Date: 20031017
  Transmission Date: 20080405
  Serious: Yes (Death, Life-Threatening, Hospitalization)
  Sender: FDA-Public Use
  Company Number: FR-ROCHE-348556

PATIENT
  Age: 43 Year
  Sex: Male
  Weight: 65 kg

DRUGS (5)
  1. ENFUVIRTIDE [Suspect]
     Dosage: FORM REPORTED: INJECTABLE AMPULE
     Route: 058
     Dates: start: 20030718
  2. HIVID [Concomitant]
     Route: 048
     Dates: start: 20030129
  3. AGENERASE [Concomitant]
     Route: 048
     Dates: start: 20030129
  4. NORVIR [Concomitant]
     Route: 048
     Dates: start: 20030129
  5. ZIAGEN [Concomitant]
     Route: 048
     Dates: start: 20030129

REACTIONS (4)
  - CARDIAC ARREST [None]
  - LYMPHADENOPATHY [None]
  - METABOLIC ACIDOSIS [None]
  - VENTRICULAR ARRHYTHMIA [None]
